FAERS Safety Report 5337656-5 (Version None)
Quarter: 2007Q2

REPORT INFORMATION
  Report Type: 
  Country: None (occurrence: None)
  Receive Date: 20070315
  Receipt Date: 20060602
  Transmission Date: 20071010
  Serious: Yes (Hospitalization)
  Sender: FDA-Public Use
  Company Number: PHEH2006US07257

PATIENT
  Sex: Female

DRUGS (2)
  1. TRILEPTAL [Suspect]
     Indication: CONVULSION
     Dosage: 900 MG QAM + 1200 MG QHS, ORAL
     Route: 048
  2. TOPAMAX [Concomitant]

REACTIONS (1)
  - CONVULSION [None]
